FAERS Safety Report 7744442-5 (Version None)
Quarter: 2011Q3

REPORT INFORMATION
  Report Type: 
  Country: None (occurrence: None)
  Receive Date: 20110912
  Receipt Date: 20110906
  Transmission Date: 20111222
  Serious: Yes (Other)
  Sender: FDA-Public Use
  Company Number: JP-ABBOTT-11P-087-0851492-00

PATIENT
  Sex: Female
  Weight: 63 kg

DRUGS (3)
  1. CLARITHROMYCIN [Suspect]
     Indication: BRONCHITIS
     Route: 048
     Dates: start: 20110803, end: 20110816
  2. MUCOSOLVAN [Concomitant]
     Indication: BRONCHITIS
     Route: 048
     Dates: start: 20110720, end: 20110823
  3. BAKUMONDOUTO [Concomitant]
     Indication: BRONCHITIS
     Route: 048
     Dates: start: 20110720, end: 20110823

REACTIONS (1)
  - RHABDOMYOLYSIS [None]
